FAERS Safety Report 5398984-0 (Version None)
Quarter: 2007Q3

REPORT INFORMATION
  Report Type: 
  Country: None (occurrence: None)
  Receive Date: 20070727
  Receipt Date: 20070716
  Transmission Date: 20080115
  Serious: Yes (Death, Hospitalization)
  Sender: FDA-Public Use
  Company Number: FR-AMGEN-UK227665

PATIENT
  Sex: Male
  Weight: 41 kg

DRUGS (4)
  1. NEULASTA [Suspect]
     Indication: CHEMOTHERAPY
     Route: 058
     Dates: start: 20060124
  2. FLUOROURACIL [Suspect]
     Dates: start: 20060124, end: 20060322
  3. EPIRUBICIN HCL [Suspect]
  4. CISPLATIN [Suspect]

REACTIONS (4)
  - FEBRILE BONE MARROW APLASIA [None]
  - NEUTROPENIA [None]
  - PRE-EXISTING DISEASE [None]
  - THROMBOCYTOPENIA [None]
